FAERS Safety Report 8480967-5 (Version None)
Quarter: 2012Q3

REPORT INFORMATION
  Report Type: 
  Country: None (occurrence: None)
  Receive Date: 20120702
  Receipt Date: 20120625
  Transmission Date: 20120928
  Serious: Yes (Hospitalization)
  Sender: FDA-Public Use
  Company Number: US-B.I. PHARMACEUTICALS,INC./RIDGEFIELD-2012-BP-14403BP

PATIENT
  Age: 70 Year
  Sex: Male

DRUGS (3)
  1. FLECAINIDE ACETATE [Concomitant]
     Route: 048
  2. OMEPRAZOLE [Concomitant]
     Route: 048
  3. PRADAXA [Suspect]
     Indication: ATRIAL FIBRILLATION
     Dosage: 300 MG
     Route: 048
     Dates: start: 20120501

REACTIONS (2)
  - TRANSIENT ISCHAEMIC ATTACK [None]
  - ACTIVATED PARTIAL THROMBOPLASTIN TIME ABNORMAL [None]
